FAERS Safety Report 8435062-8 (Version None)
Quarter: 2012Q2

REPORT INFORMATION
  Report Type: 
  Country: None (occurrence: None)
  Receive Date: 20120614
  Receipt Date: 20120605
  Transmission Date: 20120825
  Serious: Yes (Other)
  Sender: FDA-Public Use
  Company Number: PHHY2012NL049451

PATIENT

DRUGS (1)
  1. FLUVASTATIN [Suspect]
     Dosage: 80 MG, ONCE DAILY

REACTIONS (1)
  - POST PROCEDURAL STROKE [None]
